FAERS Safety Report 11559569 (Version 3)
Quarter: 2015Q4

REPORT INFORMATION
  Report Type: Report from Study
  Country: AR (occurrence: AR)
  Receive Date: 20150928
  Receipt Date: 20151020
  Transmission Date: 20160304
  Serious: Yes (Other)
  Sender: FDA-Public Use
  Company Number: AR-ROCHE-1638210

PATIENT
  Age: 88 Year
  Sex: Female

DRUGS (41)
  1. PARACETAMOL [Concomitant]
     Active Substance: ACETAMINOPHEN
     Route: 065
     Dates: start: 20140611, end: 20140611
  2. PARACETAMOL [Concomitant]
     Active Substance: ACETAMINOPHEN
     Dosage: 1 TABLET
     Route: 065
     Dates: start: 20141203, end: 20141203
  3. ONDASETRON [Concomitant]
     Active Substance: ONDANSETRON
     Route: 065
     Dates: start: 20140505, end: 20140505
  4. BENADRYL (ARGENTINA) [Concomitant]
     Route: 065
     Dates: start: 20140403, end: 20140403
  5. BENADRYL (ARGENTINA) [Concomitant]
     Dosage: 1 TABLET
     Route: 065
     Dates: start: 20140807, end: 20140807
  6. PARACETAMOL [Concomitant]
     Active Substance: ACETAMINOPHEN
     Dosage: 1 CAPSULE
     Route: 065
     Dates: start: 20140505, end: 20140505
  7. DEXAMETHASONE. [Concomitant]
     Active Substance: DEXAMETHASONE
     Indication: PREMEDICATION
     Route: 065
     Dates: start: 20140204, end: 20140204
  8. BENADRYL (ARGENTINA) [Concomitant]
     Route: 065
     Dates: start: 20140204, end: 20140204
  9. BENADRYL (ARGENTINA) [Concomitant]
     Dosage: 1 TABLET
     Route: 065
     Dates: start: 20150527, end: 20150527
  10. RITUXIMAB [Suspect]
     Active Substance: RITUXIMAB
     Indication: B-CELL LYMPHOMA
     Dosage: 375 MG/M2 IN CYCLE 1 (AS PER PROTOCOL)
     Route: 042
     Dates: start: 20140107
  11. RITUXIMAB [Suspect]
     Active Substance: RITUXIMAB
     Indication: B-CELL LYMPHOMA
     Dosage: INDUCTION
     Route: 058
     Dates: start: 20140107, end: 20140802
  12. PARACETAMOL [Concomitant]
     Active Substance: ACETAMINOPHEN
     Route: 065
     Dates: start: 20140306, end: 20140306
  13. ONDASETRON [Concomitant]
     Active Substance: ONDANSETRON
     Indication: PREMEDICATION
     Route: 065
     Dates: start: 20140107, end: 20140108
  14. ONDASETRON [Concomitant]
     Active Substance: ONDANSETRON
     Route: 065
     Dates: start: 20140205, end: 20140205
  15. BENADRYL (ARGENTINA) [Concomitant]
     Indication: PREMEDICATION
     Route: 065
     Dates: start: 20140107, end: 20140107
  16. RANITIDINE [Concomitant]
     Active Substance: RANITIDINE\RANITIDINE HYDROCHLORIDE
     Indication: PREMEDICATION
     Route: 065
     Dates: start: 20140204, end: 20140204
  17. RANITIDINE [Concomitant]
     Active Substance: RANITIDINE\RANITIDINE HYDROCHLORIDE
     Route: 065
     Dates: start: 20150923
  18. BETAMETHASONE. [Concomitant]
     Active Substance: BETAMETHASONE
     Route: 065
     Dates: start: 20140922, end: 20141005
  19. PARACETAMOL [Concomitant]
     Active Substance: ACETAMINOPHEN
     Dosage: 1 TABLET
     Route: 065
     Dates: start: 20140807, end: 20140807
  20. BENADRYL (ARGENTINA) [Concomitant]
     Route: 065
     Dates: start: 20140306, end: 20140306
  21. BENADRYL (ARGENTINA) [Concomitant]
     Dosage: 1 CAPSULE
     Route: 065
     Dates: start: 20141203, end: 20141203
  22. PANTOPRAZOL [Concomitant]
     Active Substance: PANTOPRAZOLE SODIUM
     Route: 065
     Dates: start: 20140204
  23. PREDNISONE. [Concomitant]
     Active Substance: PREDNISONE
     Indication: PREMEDICATION
     Route: 065
     Dates: start: 20140306, end: 20140306
  24. RITUXIMAB [Suspect]
     Active Substance: RITUXIMAB
     Dosage: DATE OF MOST RECENT DOSE PRIOR TO SAE: 29/JUL/2015; MAINTAINENCE
     Route: 058
     Dates: start: 20141002, end: 20150729
  25. ONDASETRON [Concomitant]
     Active Substance: ONDANSETRON
     Route: 065
     Dates: start: 20140306, end: 20140306
  26. ONDASETRON [Concomitant]
     Active Substance: ONDANSETRON
     Route: 065
     Dates: start: 20140404, end: 20140404
  27. ONDASETRON [Concomitant]
     Active Substance: ONDANSETRON
     Route: 065
     Dates: start: 20140611, end: 20140611
  28. LASIX [Concomitant]
     Active Substance: FUROSEMIDE
     Indication: DYSPNOEA
     Route: 065
     Dates: start: 20130130, end: 20141031
  29. PARACETAMOL [Concomitant]
     Active Substance: ACETAMINOPHEN
     Indication: PREMEDICATION
     Dosage: 1 TABLET
     Route: 065
     Dates: start: 20140107, end: 20140107
  30. PARACETAMOL [Concomitant]
     Active Substance: ACETAMINOPHEN
     Route: 065
     Dates: start: 20150527, end: 20150527
  31. ONDASETRON [Concomitant]
     Active Substance: ONDANSETRON
     Route: 065
     Dates: start: 20140612, end: 20140612
  32. BISOPROLOL [Concomitant]
     Active Substance: BISOPROLOL
     Indication: ARRHYTHMIA
     Route: 065
     Dates: start: 20130130
  33. BENADRYL (ARGENTINA) [Concomitant]
     Route: 065
     Dates: start: 20140505, end: 20140505
  34. FUSIDIC ACID [Concomitant]
     Active Substance: FUSIDIC ACID
     Route: 065
     Dates: start: 20140922, end: 20141005
  35. ONDASETRON [Concomitant]
     Active Substance: ONDANSETRON
     Route: 065
     Dates: start: 20140307, end: 20140307
  36. ONDASETRON [Concomitant]
     Active Substance: ONDANSETRON
     Route: 065
     Dates: start: 20140403, end: 20140403
  37. ONDASETRON [Concomitant]
     Active Substance: ONDANSETRON
     Route: 065
     Dates: start: 20140506, end: 20140506
  38. METOCLOPRAMIDE. [Concomitant]
     Active Substance: METOCLOPRAMIDE
     Indication: NAUSEA
     Dosage: 60 DROPS
     Route: 065
     Dates: start: 20140110, end: 20140112
  39. PARACETAMOL [Concomitant]
     Active Substance: ACETAMINOPHEN
     Dosage: 1 CAPSULE
     Route: 065
     Dates: start: 20140403, end: 20140403
  40. BENADRYL (ARGENTINA) [Concomitant]
     Route: 065
     Dates: start: 20140611, end: 20140611
  41. METOCLOPRAMIDE. [Concomitant]
     Active Substance: METOCLOPRAMIDE
     Route: 065
     Dates: start: 20140204

REACTIONS (1)
  - Malignant melanoma [Not Recovered/Not Resolved]

NARRATIVE: CASE EVENT DATE: 20150831
